FAERS Safety Report 9343232 (Version 1)
Quarter: 2013Q2

REPORT INFORMATION
  Report Type: Spontaneous
  Country: CN (occurrence: CN)
  Receive Date: 20130611
  Receipt Date: 20130611
  Transmission Date: 20140414
  Serious: Yes (Other)
  Sender: FDA-Public Use
  Company Number: CN-BAXTER-2013BAX020803

PATIENT
  Age: 76 Year
  Sex: Male

DRUGS (4)
  1. FAT EXTRACT [Suspect]
     Indication: NUTRITIONAL SUPPLEMENTATION
     Route: 042
     Dates: start: 20120227
  2. AMINO ACIDS INJECTION [Suspect]
     Indication: NUTRITIONAL SUPPLEMENTATION
     Route: 042
     Dates: start: 20120227
  3. 5% GLUCOSE INJECTION [Suspect]
     Indication: NUTRITIONAL SUPPLEMENTATION
     Route: 042
  4. INTRALIPID [Suspect]
     Indication: NUTRITIONAL SUPPLEMENTATION
     Route: 042
     Dates: start: 20120227

REACTIONS (5)
  - Hepatic function abnormal [Recovered/Resolved]
  - Aspartate aminotransferase increased [None]
  - Alanine aminotransferase increased [None]
  - Gamma-glutamyltransferase increased [None]
  - Blood bilirubin increased [None]
